FAERS Safety Report 9287872 (Version 2)
Quarter: 2013Q2

REPORT INFORMATION
  Report Type: Report from Study
  Country: US (occurrence: US)
  Receive Date: 20130514
  Receipt Date: 20130530
  Transmission Date: 20140414
  Serious: Yes (Hospitalization)
  Sender: FDA-Public Use
  Company Number: US-BAYER-2013-057646

PATIENT
  Age: 68 Year
  Sex: Male

DRUGS (2)
  1. NEXAVAR [Suspect]
     Indication: HEPATIC CANCER
     Dosage: 200 MG, HS
     Route: 048
     Dates: start: 201303, end: 20130504
  2. NEXAVAR [Suspect]
     Indication: HEPATIC CANCER
     Dosage: 200 MG, HS
     Route: 048
     Dates: start: 201305, end: 20130506

REACTIONS (3)
  - Dyspnoea [None]
  - Flank pain [None]
  - Ammonia increased [None]
